FAERS Safety Report 9450571 (Version 2)
Quarter: 2013Q3

REPORT INFORMATION
  Report Type: Report from Study
  Country: DE (occurrence: DE)
  Receive Date: 20130809
  Receipt Date: 20130815
  Transmission Date: 20140515
  Serious: Yes (Death)
  Sender: FDA-Public Use
  Company Number: DE-GLAXOSMITHKLINE-B0882400B

PATIENT
  Age: 49 Year
  Sex: Male

DRUGS (6)
  1. PAZOPANIB [Suspect]
     Indication: RENAL CELL CARCINOMA
     Dosage: 400MG TWICE PER DAY
     Route: 048
     Dates: start: 20130215, end: 20130402
  2. VOMEX [Concomitant]
     Dosage: 50MG THREE TIMES PER DAY
  3. ONDANSETRON [Concomitant]
     Dosage: 8MG THREE TIMES PER DAY
  4. NOVALGIN [Concomitant]
     Dosage: 500G FOUR TIMES PER DAY
  5. PALLADON [Concomitant]
     Dosage: 12MG TWICE PER DAY
  6. AMITRIPTYLIN [Concomitant]
     Dosage: 50G PER DAY

REACTIONS (2)
  - Septic shock [Fatal]
  - Liver abscess [Fatal]
